FAERS Safety Report 17181034 (Version 6)
Quarter: 2020Q1

REPORT INFORMATION
  Report Type: Report from Study
  Country: US (occurrence: US)
  Receive Date: 20191219
  Receipt Date: 20200311
  Transmission Date: 20200409
  Serious: Yes (Hospitalization)
  Sender: FDA-Public Use
  Company Number: US-ACTELION PHARMACEUTICALS LTD.-A-US2019-199485

PATIENT
  Sex: Female
  Weight: 63.95 kg

DRUGS (2)
  1. OFEV [Suspect]
     Active Substance: NINTEDANIB
     Indication: PRODUCT USED FOR UNKNOWN INDICATION
     Dosage: UNK
     Route: 065
  2. OPSUMIT [Suspect]
     Active Substance: MACITENTAN
     Indication: PULMONARY ARTERIAL HYPERTENSION
     Dosage: 10 MG, QD
     Route: 048

REACTIONS (14)
  - Abdominal distension [Unknown]
  - Arthralgia [Unknown]
  - Nausea [Unknown]
  - Gastrointestinal infection [Unknown]
  - Product dose omission [Unknown]
  - Gastrooesophageal reflux disease [Unknown]
  - Viral infection [Unknown]
  - Staphylococcal infection [Unknown]
  - Diverticulitis [Unknown]
  - Vomiting [Recovering/Resolving]
  - Sepsis [Unknown]
  - Transfusion [Unknown]
  - Constipation [Unknown]
  - Diarrhoea [Unknown]
